FAERS Safety Report 24132606 (Version 1)
Quarter: 2024Q3

REPORT INFORMATION
  Report Type: Spontaneous
  Country: RU (occurrence: RU)
  Receive Date: 20240724
  Receipt Date: 20240724
  Transmission Date: 20241017
  Serious: Yes (Other)
  Sender: NOVARTIS
  Company Number: RU-002147023-NVSC2024RU150252

PATIENT
  Age: 27 Year
  Sex: Female
  Weight: 58 kg

DRUGS (1)
  1. COSENTYX [Suspect]
     Active Substance: SECUKINUMAB
     Indication: Ankylosing spondylitis
     Dosage: 150 MG, QMO (SOLUTION FOR SUBCUTANEOUS ADMINISTRATION)
     Route: 058
     Dates: start: 20230517, end: 20240322

REACTIONS (9)
  - Pyrexia [Recovering/Resolving]
  - Lupus-like syndrome [Recovering/Resolving]
  - Asthenia [Unknown]
  - Dyspnoea [Unknown]
  - Anaemia [Unknown]
  - Proteinuria [Unknown]
  - Pleurisy [Unknown]
  - Pericarditis [Unknown]
  - Lymphadenopathy [Unknown]

NARRATIVE: CASE EVENT DATE: 20240322
